FAERS Safety Report 15035414 (Version 3)
Quarter: 2018Q3

REPORT INFORMATION
  Report Type: Spontaneous
  Country: JP (occurrence: JP)
  Receive Date: 20180620
  Receipt Date: 20180706
  Transmission Date: 20181010
  Serious: Yes (Death, Hospitalization, Other)
  Sender: FDA-Public Use
  Company Number: JP-ROCHE-2141392

PATIENT
  Age: 69 Year
  Sex: Male
  Weight: 55 kg

DRUGS (2)
  1. XELODA [Suspect]
     Active Substance: CAPECITABINE
     Indication: COLON CANCER
     Dosage: 2 WEEKS ADMINISTRATION FOLLOWED BY 1 WEEK REST
     Route: 048
     Dates: start: 20170928, end: 20171012
  2. ELPLAT [Suspect]
     Active Substance: OXALIPLATIN
     Indication: COLON CANCER
     Route: 041
     Dates: start: 20170928, end: 20170928

REACTIONS (10)
  - Hyponatraemia [Unknown]
  - Circulatory collapse [Fatal]
  - Decreased appetite [Fatal]
  - Diarrhoea [Fatal]
  - Dehydration [Fatal]
  - Shock [Unknown]
  - Blood bilirubin increased [Unknown]
  - Nausea [Unknown]
  - Hypothermia [Unknown]
  - Embolism [Unknown]

NARRATIVE: CASE EVENT DATE: 20171009
